FAERS Safety Report 8910516 (Version 2)
Quarter: 2013Q1

REPORT INFORMATION
  Report Type: Spontaneous
  Country: US (occurrence: US)
  Receive Date: 20121115
  Receipt Date: 20130129
  Transmission Date: 20140127
  Serious: No
  Sender: FDA-Public Use
  Company Number: US-009507513-1211USA005518

PATIENT
  Age: 21 Year
  Sex: Female
  Weight: 83.9 kg

DRUGS (1)
  1. IMPLANON [Suspect]
     Indication: CONTRACEPTION
     Dosage: 1 ROD
     Route: 059
     Dates: start: 20101020

REACTIONS (3)
  - Device breakage [Unknown]
  - Medical device complication [Unknown]
  - No adverse event [Unknown]
